FAERS Safety Report 8032851-9 (Version None)
Quarter: 2011Q4

REPORT INFORMATION
  Report Type: 
  Country: None (occurrence: None)
  Receive Date: 20111202
  Receipt Date: 20100222
  Transmission Date: 20120403
  Serious: Yes (Hospitalization)
  Sender: FDA-Public Use
  Company Number: 2009-199327-NL

PATIENT
  Age: 24 Year
  Sex: Female
  Weight: 40.8237 kg

DRUGS (5)
  1. EFFEXOR [Concomitant]
  2. PERCOCET [Concomitant]
  3. XANAX [Concomitant]
  4. TOPAMAX [Concomitant]
  5. NUVARING [Suspect]
     Indication: CONTRACEPTION
     Dates: start: 20060301, end: 20060801

REACTIONS (1)
  - DEEP VEIN THROMBOSIS [None]
